FAERS Safety Report 8759767 (Version 4)
Quarter: 2015Q4

REPORT INFORMATION
  Report Type: Spontaneous
  Country: US (occurrence: US)
  Receive Date: 20120829
  Receipt Date: 20151012
  Transmission Date: 20160305
  Serious: Yes (Death, Hospitalization, Other)
  Sender: FDA-Public Use
  Company Number: US-ASTRAZENECA-2012SE60505

PATIENT
  Age: 27080 Day
  Sex: Female
  Weight: 81.6 kg

DRUGS (17)
  1. CRESTOR [Suspect]
     Active Substance: ROSUVASTATIN CALCIUM
     Indication: BLOOD CHOLESTEROL ABNORMAL
     Route: 048
     Dates: start: 2010, end: 2012
  2. POTASSIUM [Suspect]
     Active Substance: POTASSIUM
     Indication: CARDIAC FAILURE
     Route: 065
     Dates: start: 201310
  3. OXYCODONE [Concomitant]
     Active Substance: OXYCODONE
     Indication: SCOLIOSIS
     Dosage: 5 DAILY
     Route: 048
     Dates: start: 2009
  4. PRILOSEC [Suspect]
     Active Substance: OMEPRAZOLE MAGNESIUM
     Indication: GASTROOESOPHAGEAL REFLUX DISEASE
     Route: 048
     Dates: start: 2013
  5. POTASSIUM [Suspect]
     Active Substance: POTASSIUM
     Indication: MYOCARDIAL INFARCTION
     Route: 065
     Dates: start: 201310
  6. PROZAC [Concomitant]
     Active Substance: FLUOXETINE HYDROCHLORIDE
     Indication: GASTROOESOPHAGEAL REFLUX DISEASE
     Dosage: 3 DAILY
     Route: 048
     Dates: start: 2011
  7. PRILOSEC [Suspect]
     Active Substance: OMEPRAZOLE MAGNESIUM
     Indication: CHOKING
     Route: 048
     Dates: start: 2013
  8. CRESTOR [Suspect]
     Active Substance: ROSUVASTATIN CALCIUM
     Indication: BLOOD CHOLESTEROL ABNORMAL
     Route: 048
  9. LASIX [Suspect]
     Active Substance: FUROSEMIDE
     Indication: CARDIAC FAILURE
     Route: 065
     Dates: start: 201310
  10. PLAVIX [Concomitant]
     Active Substance: CLOPIDOGREL BISULFATE
     Indication: ANTICOAGULANT THERAPY
     Route: 048
  11. SYMBICORT [Suspect]
     Active Substance: BUDESONIDE\FORMOTEROL FUMARATE DIHYDRATE
     Indication: CHRONIC OBSTRUCTIVE PULMONARY DISEASE
     Dosage: 160/4.5 TWO PUFFS TWO TIMES A DAY
     Route: 055
     Dates: start: 201404
  12. CALCIUM [Concomitant]
     Active Substance: CALCIUM
     Dosage: 1000 DAILY
     Route: 048
     Dates: start: 2006
  13. PREDNISONE. [Concomitant]
     Active Substance: PREDNISONE
     Dates: start: 2011
  14. VITAMIN D [Concomitant]
     Active Substance: CHOLECALCIFEROL
  15. CRESTOR [Suspect]
     Active Substance: ROSUVASTATIN CALCIUM
     Indication: BLOOD CHOLESTEROL ABNORMAL
     Route: 048
     Dates: start: 2012
  16. LASIX [Suspect]
     Active Substance: FUROSEMIDE
     Indication: MYOCARDIAL INFARCTION
     Route: 065
     Dates: start: 201310
  17. IRON [Concomitant]
     Active Substance: IRON

REACTIONS (17)
  - Blood pressure decreased [Unknown]
  - Gastrooesophageal reflux disease [Unknown]
  - Death [Fatal]
  - Malaise [Unknown]
  - Muscle spasms [Unknown]
  - Adrenal insufficiency [Unknown]
  - Loss of consciousness [Unknown]
  - Hiatus hernia [Unknown]
  - Anaemia [Unknown]
  - Weight increased [Unknown]
  - Myocardial infarction [Unknown]
  - Cardiac failure congestive [Unknown]
  - Blood potassium abnormal [Unknown]
  - Cardiac failure [Unknown]
  - Influenza [Unknown]
  - Fatigue [Unknown]
  - Drug dose omission [Unknown]

NARRATIVE: CASE EVENT DATE: 2011
